FAERS Safety Report 14328924 (Version 4)
Quarter: 2018Q3

REPORT INFORMATION
  Report Type: Spontaneous
  Country: US (occurrence: US)
  Receive Date: 20171227
  Receipt Date: 20180710
  Transmission Date: 20181010
  Serious: No
  Sender: FDA-Public Use
  Company Number: US-PFIZER INC-2017548660

PATIENT
  Age: 46 Year
  Sex: Female

DRUGS (14)
  1. FLEXERIL [Concomitant]
     Active Substance: CYCLOBENZAPRINE HYDROCHLORIDE
     Dosage: UNK
  2. DOCUSATE SODIUM. [Concomitant]
     Active Substance: DOCUSATE SODIUM
     Dosage: UNK
  3. BUTALBITAL AND ACETAMINOPHEN [Concomitant]
     Active Substance: ACETAMINOPHEN\BUTALBITAL
     Indication: HEADACHE
     Dosage: 1 DF, AS NEEDED [ TAKE 1 TABLET, DAILY (BUTALBITAL:50 MG/ACETAMINOPHEN:325 MG)]
     Route: 048
  4. MORPHINE SULFATE. [Concomitant]
     Active Substance: MORPHINE SULFATE
     Dosage: 30 MG, 1X/DAY (EVERY NOON)
     Route: 048
  5. TIZANIDINE HCL [Concomitant]
     Active Substance: TIZANIDINE HYDROCHLORIDE
     Indication: MUSCLE SPASMS
     Dosage: 4 MG, AS NEEDED (THREE TIMES A DAY)
  6. CYCLOBENZAPRINE HCL [Concomitant]
     Active Substance: CYCLOBENZAPRINE HYDROCHLORIDE
     Dosage: 10 MG, AS NEEDED (EVERY 8 HOURS)
     Route: 048
  7. INTEGRA F [Concomitant]
     Active Substance: ASCORBIC ACID\FERROUS ASPARTO GLYCINATE\FERROUS FUMARATE\FOLIC ACID\NIACIN
     Dosage: 1 DF, DAILY (TAKE 1 CAPSULE, DAILY)
     Route: 048
  8. PREVACID [Concomitant]
     Active Substance: LANSOPRAZOLE
     Dosage: 30 MG, UNK
  9. NEURONTIN [Suspect]
     Active Substance: GABAPENTIN
     Indication: CERVICAL RADICULOPATHY
     Dosage: 300 MG, 3X/DAY
     Route: 048
     Dates: start: 201205, end: 201712
  10. OXYCODONE HYDROCHLORIDE. [Concomitant]
     Active Substance: OXYCODONE HYDROCHLORIDE
     Indication: PAIN
     Dosage: 0.5 DF, AS NEEDED (TAKE 1/2 TABLET EVERY 8 HRS)
     Route: 048
  11. LYRICA [Concomitant]
     Active Substance: PREGABALIN
     Dosage: 75 MG, 2X/DAY
     Route: 048
  12. MORPHINE SULFATE. [Concomitant]
     Active Substance: MORPHINE SULFATE
     Dosage: 30 MG, UNK (EVERY EIGHT HOURS)
     Route: 048
  13. ZOLOFT [Concomitant]
     Active Substance: SERTRALINE HYDROCHLORIDE
     Dosage: 1.5 DF, UNK (TAKE 1.5 TABLET, EVERY NIGHT)
  14. NEURONTIN [Suspect]
     Active Substance: GABAPENTIN
     Indication: SPONDYLITIS
     Dosage: 300 MG, 2X/DAY
     Route: 048
     Dates: start: 20120508, end: 20171211

REACTIONS (8)
  - Product use in unapproved indication [Unknown]
  - Coordination abnormal [Unknown]
  - Balance disorder [Unknown]
  - Weight increased [Unknown]
  - Altered visual depth perception [Unknown]
  - Paraesthesia [Unknown]
  - Visual impairment [Unknown]
  - Drug hypersensitivity [Unknown]

NARRATIVE: CASE EVENT DATE: 201205
